FAERS Safety Report 18968082 (Version 1)
Quarter: 2021Q1

REPORT INFORMATION
  Report Type: Spontaneous
  Country: US (occurrence: US)
  Receive Date: 20210304
  Receipt Date: 20210304
  Transmission Date: 20210420
  Serious: No
  Sender: FDA-Public Use
  Company Number: US-BAUSCH-BL-2021-007412

PATIENT
  Age: 66 Year
  Sex: Female

DRUGS (1)
  1. XIFAXAN [Suspect]
     Active Substance: RIFAXIMIN
     Indication: HEPATIC CIRRHOSIS
     Dosage: STOPPED ON SOMETIME IN 2018 OR 2019
     Route: 048
     Dates: start: 2018

REACTIONS (3)
  - Inability to afford medication [Unknown]
  - Headache [Unknown]
  - Therapy interrupted [Unknown]
